FAERS Safety Report 16014980 (Version 5)
Quarter: 2019Q2

REPORT INFORMATION
  Report Type: Report from Study
  Country: None (occurrence: CH)
  Receive Date: 20190227
  Receipt Date: 20190527
  Transmission Date: 20190711
  Serious: Yes (Hospitalization, Other)
  Sender: FDA-Public Use
  Company Number: CH-ABBVIE-19S-151-2679654-00

PATIENT
  Age: 76 Year
  Sex: Male

DRUGS (14)
  1. DUODOPA [Suspect]
     Active Substance: CARBIDOPA\LEVODOPA
     Dosage: MD 6 ML, CR DAY2.6 ML/H, CR NIGHT 0.6 ML/H, ED 1.5 ML
     Route: 050
     Dates: start: 20190428
  2. DUODOPA [Suspect]
     Active Substance: CARBIDOPA\LEVODOPA
     Dosage: MD 7ML, CRD 2.9ML/H, CRN 2.5ML/H, ED 1.5ML?24 H THERAPY
     Route: 050
     Dates: start: 20181207, end: 20190428
  3. PANTOPRAZOL [Concomitant]
     Active Substance: PANTOPRAZOLE SODIUM
     Indication: PRODUCT USED FOR UNKNOWN INDICATION
     Dosage: AT 08:00
  4. VITAMIN B12 AMINO [Concomitant]
     Indication: PRODUCT USED FOR UNKNOWN INDICATION
     Dosage: AT 08:00
     Route: 058
  5. DUODOPA [Suspect]
     Active Substance: CARBIDOPA\LEVODOPA
     Indication: PARKINSON^S DISEASE
     Route: 050
     Dates: start: 20141103, end: 20180420
  6. DUODOPA [Suspect]
     Active Substance: CARBIDOPA\LEVODOPA
     Dosage: MD 8ML, CRD 3ML/H, CRN 2.8ML/H, ED 1.5ML?24 H THERAPY
     Route: 050
     Dates: start: 20180420, end: 20181207
  7. AMLODIPIN [Concomitant]
     Active Substance: AMLODIPINE BESYLATE
     Indication: PRODUCT USED FOR UNKNOWN INDICATION
     Dosage: AT 20:00
  8. BECOZYM [Concomitant]
     Active Substance: VITAMINS
     Indication: PRODUCT USED FOR UNKNOWN INDICATION
     Dosage: AT 12.00
  9. LAXOBERON [Concomitant]
     Active Substance: SODIUM PICOSULFATE
     Indication: PRODUCT USED FOR UNKNOWN INDICATION
     Dosage: AS RESERVE: UP TO MAX. 2 X 20 DROPS PER DAY
  10. QUETIAPINE. [Suspect]
     Active Substance: QUETIAPINE
     Indication: PRODUCT USED FOR UNKNOWN INDICATION
     Route: 065
  11. ASPIRIN CARDIO [Concomitant]
     Active Substance: ASPIRIN
     Indication: PRODUCT USED FOR UNKNOWN INDICATION
     Dosage: AT 08:00
  12. MOVICOL [Concomitant]
     Active Substance: POLYETHYLENE GLYCOL 3350\POTASSIUM CHLORIDE\SODIUM BICARBONATE\SODIUM CHLORIDE
     Indication: PRODUCT USED FOR UNKNOWN INDICATION
     Dosage: AS RESERVE: UP TO MAX. 2 X 1 PER DAY, AT 08:00
  13. QUETIAPIN [Concomitant]
     Active Substance: QUETIAPINE
     Indication: PRODUCT USED FOR UNKNOWN INDICATION
     Dosage: AS RESERVE: UP TO MAX. 2 X 0.5 PER DAY, 0.5 AT 12:00, 1.0 AT 20:00
  14. PARAGOL N EMULS [Concomitant]
     Indication: PRODUCT USED FOR UNKNOWN INDICATION
     Dosage: AT 08:00

REACTIONS (12)
  - Confusional state [Recovered/Resolved]
  - Judgement impaired [Recovered/Resolved]
  - Loss of consciousness [Recovered/Resolved]
  - Device alarm issue [Recovered/Resolved]
  - Fatigue [Unknown]
  - Abnormal behaviour [Unknown]
  - Device occlusion [Recovered/Resolved]
  - Aggression [Recovered/Resolved]
  - Fall [Recovered/Resolved]
  - Cerebral haemorrhage [Not Recovered/Not Resolved]
  - Device kink [Recovered/Resolved]
  - Illusion [Recovered/Resolved]

NARRATIVE: CASE EVENT DATE: 20190520
